FAERS Safety Report 5704437-X (Version None)
Quarter: 2008Q2

REPORT INFORMATION
  Report Type: 
  Country: None (occurrence: None)
  Receive Date: 20080414
  Receipt Date: 20080410
  Transmission Date: 20081010
  Serious: Yes (Life-Threatening)
  Sender: FDA-Public Use
  Company Number: B0515965A

PATIENT
  Age: 46 Year
  Sex: Female
  Weight: 85 kg

DRUGS (3)
  1. AUGMENTIN '125' [Suspect]
     Indication: PREOPERATIVE CARE
     Route: 042
     Dates: start: 20080119, end: 20080119
  2. REMIFENTANIL [Concomitant]
  3. PROPOFOL [Concomitant]

REACTIONS (4)
  - HEART RATE INCREASED [None]
  - HYPOTENSION [None]
  - OXYGEN SATURATION DECREASED [None]
  - RASH [None]
